FAERS Safety Report 9827400 (Version 3)
Quarter: 2014Q1

REPORT INFORMATION
  Report Type: Spontaneous
  Country: DE (occurrence: DE)
  Receive Date: 20140117
  Receipt Date: 20140304
  Transmission Date: 20141002
  Serious: Yes (Other)
  Sender: FDA-Public Use
  Company Number: DE-GILEAD-2014-0092277

PATIENT
  Age: 31 Year
  Sex: 0
  Weight: 79 kg

DRUGS (1)
  1. STRIBILD [Suspect]
     Indication: HIV INFECTION
     Dosage: UNK
     Route: 048
     Dates: start: 20130702, end: 20131015

REACTIONS (2)
  - Chemotherapy [Unknown]
  - Lymphoma [Not Recovered/Not Resolved]
